FAERS Safety Report 4949570-5 (Version None)
Quarter: 2006Q1

REPORT INFORMATION
  Report Type: 
  Country: None (occurrence: None)
  Receive Date: 20060316
  Receipt Date: 20060308
  Transmission Date: 20060701
  Serious: Yes (Hospitalization, Other)
  Sender: FDA-Public Use
  Company Number: 2006BH002049

PATIENT
  Age: 53 Year
  Sex: Female

DRUGS (7)
  1. REGLAN [Suspect]
     Dates: start: 20051201
  2. PEG-INTRON [Suspect]
     Indication: HEPATITIS C
     Dosage: 120 UG; EVERY WEEK;SC
     Route: 058
     Dates: start: 20051001, end: 20060101
  3. RIBAVIRIN [Suspect]
     Indication: HEPATITIS C
     Dosage: 1000 MG;EVERY DAY;PO
     Route: 048
     Dates: start: 20051001, end: 20060101
  4. ADVAIR DISKUS 100/50 [Concomitant]
  5. ALBUTEROL SULATE [Concomitant]
  6. IPRATROPIUM BROMIDE [Concomitant]
  7. SPIRIVA [Concomitant]

REACTIONS (27)
  - ABNORMAL BEHAVIOUR [None]
  - ANOREXIA [None]
  - BLOOD GLUCOSE INCREASED [None]
  - DEHYDRATION [None]
  - DEPRESSION [None]
  - DRUG HYPERSENSITIVITY [None]
  - DRY MOUTH [None]
  - EXCITABILITY [None]
  - EXTRAPYRAMIDAL DISORDER [None]
  - FATIGUE [None]
  - FEELING ABNORMAL [None]
  - HALLUCINATION, VISUAL [None]
  - HYPOTHYROIDISM [None]
  - INFLUENZA LIKE ILLNESS [None]
  - INJECTION SITE INDURATION [None]
  - INJECTION SITE REACTION [None]
  - INSOMNIA [None]
  - LETHARGY [None]
  - MEMORY IMPAIRMENT [None]
  - MIGRAINE [None]
  - NAUSEA [None]
  - ORAL INTAKE REDUCED [None]
  - PAROSMIA [None]
  - PNEUMONIA [None]
  - SLEEP WALKING [None]
  - TINNITUS [None]
  - VOMITING [None]
